FAERS Safety Report 24584994 (Version 1)
Quarter: 2024Q4

REPORT INFORMATION
  Report Type: Spontaneous
  Country: JP (occurrence: JP)
  Receive Date: 20241106
  Receipt Date: 20241106
  Transmission Date: 20250115
  Serious: Yes (Life-Threatening, Other)
  Sender: ELI LILLY AND COMPANY
  Company Number: JP-ELI_LILLY_AND_COMPANY-JP202410005520

PATIENT
  Age: 39 Year
  Sex: Male
  Weight: 66 kg

DRUGS (7)
  1. OLUMIANT [Suspect]
     Active Substance: BARICITINIB
     Indication: Still^s disease
     Dosage: 4 MG, DAILY
     Route: 048
     Dates: start: 20210423, end: 20210803
  2. PREDONINE [Suspect]
     Active Substance: PREDNISOLONE
     Indication: Still^s disease
     Dosage: 27.5 MG
     Route: 048
     Dates: start: 20210216
  3. PROGRAF [Suspect]
     Active Substance: TACROLIMUS
     Indication: Still^s disease
     Dosage: 2.5 MG
     Route: 048
     Dates: start: 20210406, end: 20210803
  4. LANSOPRAZOLE [Concomitant]
     Active Substance: LANSOPRAZOLE
     Indication: Prophylaxis
     Dosage: 15 MG
     Route: 048
     Dates: start: 20210216
  5. ONEALFA [Concomitant]
     Active Substance: ALFACALCIDOL
     Indication: Prophylaxis
     Dosage: 0.5 MG
     Route: 048
     Dates: start: 20210617
  6. RISPERIDONE [Concomitant]
     Active Substance: RISPERIDONE
     Indication: Insomnia
     Dosage: 2 MG
     Route: 048
     Dates: start: 20210414, end: 20210803
  7. MAGNESIUM OXIDE [Concomitant]
     Active Substance: MAGNESIUM OXIDE
     Indication: Defaecation disorder
     Dosage: 240 MG
     Route: 048
     Dates: start: 20210328, end: 20210803

REACTIONS (4)
  - Pneumocystis jirovecii pneumonia [Recovered/Resolved]
  - Acute respiratory distress syndrome [Unknown]
  - Still^s disease [Unknown]
  - Off label use [Unknown]

NARRATIVE: CASE EVENT DATE: 20210423
